FAERS Safety Report 6932978-6 (Version None)
Quarter: 2010Q3

REPORT INFORMATION
  Report Type: 
  Country: None (occurrence: None)
  Receive Date: 20100817
  Receipt Date: 20100714
  Transmission Date: 20110219
  Serious: Yes (Hospitalization)
  Sender: FDA-Public Use
  Company Number: AMI0023082

PATIENT
  Age: 62 Year
  Sex: Male

DRUGS (12)
  1. TIMOPTIC [Suspect]
     Indication: OCULAR HYPERTENSION
     Dosage: BID - 046
     Dates: start: 20100511, end: 20100525
  2. TIMOPTIC [Suspect]
     Indication: OPEN ANGLE GLAUCOMA
     Dosage: BID - 046
     Dates: start: 20100511, end: 20100525
  3. TAFLUPROST 0.0015% (MK-2452) [Suspect]
     Indication: OCULAR HYPERTENSION
     Dosage: QD -046
  4. TAFLUPROST 0.0015% (MK-2452) [Suspect]
     Indication: OPEN ANGLE GLAUCOMA
     Dosage: QD -046
  5. FOLBEE [Concomitant]
  6. SKELAXIN [Concomitant]
  7. TIKOSYN [Concomitant]
  8. ZETIA [Concomitant]
  9. CARVEDILOL [Concomitant]
  10. DIGOXIN [Concomitant]
  11. SIMVASTATIN [Concomitant]
  12. WARFARIN SODIUM [Concomitant]

REACTIONS (7)
  - ABNORMAL WEIGHT GAIN [None]
  - ATRIAL FIBRILLATION [None]
  - BLOOD PRESSURE INCREASED [None]
  - CONDITION AGGRAVATED [None]
  - DYSPNOEA [None]
  - OEDEMA PERIPHERAL [None]
  - SINUS BRADYCARDIA [None]
